FAERS Safety Report 6783710-0 (Version None)
Quarter: 2010Q2

REPORT INFORMATION
  Report Type: 
  Country: None (occurrence: None)
  Receive Date: 20100622
  Receipt Date: 20100608
  Transmission Date: 20101027
  Serious: Yes (Other)
  Sender: FDA-Public Use
  Company Number: GT-WYE-H12836010

PATIENT
  Age: 30 Year
  Sex: Female
  Weight: 99 kg

DRUGS (3)
  1. PANTECTA [Suspect]
     Indication: PEPTIC ULCER
     Route: 048
     Dates: start: 20080101, end: 20090701
  2. GLIBENCLAMIDE [Concomitant]
  3. LEVOTHYROXINE SODIUM [Concomitant]

REACTIONS (2)
  - CAESAREAN SECTION [None]
  - DRUG EXPOSURE DURING PREGNANCY [None]
